FAERS Safety Report 5470070-0 (Version None)
Quarter: 2007Q3

REPORT INFORMATION
  Report Type: 
  Country: None (occurrence: None)
  Receive Date: 20070927
  Receipt Date: 20070918
  Transmission Date: 20080115
  Serious: Yes (Other)
  Sender: FDA-Public Use
  Company Number: US-BOEHRINGER INGELHEIM PHARMACEUTICALS, INC.-2007-BP-21686PF

PATIENT
  Age: 71 Year
  Sex: Female

DRUGS (7)
  1. SPIRIVA [Suspect]
     Indication: CHRONIC OBSTRUCTIVE PULMONARY DISEASE
     Route: 055
     Dates: start: 20070101, end: 20070901
  2. ADVAIR DISKUS 100/50 [Concomitant]
  3. LIPITOR [Concomitant]
  4. NEURONTIN [Concomitant]
  5. PROCARDIA [Concomitant]
  6. XALATAN [Concomitant]
  7. VISINE EYE DROPS [Concomitant]
     Indication: DRY EYE

REACTIONS (2)
  - DYSPNOEA [None]
  - OEDEMA PERIPHERAL [None]
